FAERS Safety Report 7502082-7 (Version None)
Quarter: 2011Q2

REPORT INFORMATION
  Report Type: 
  Country: None (occurrence: None)
  Receive Date: 20110525
  Receipt Date: 20110113
  Transmission Date: 20111010
  Serious: No
  Sender: FDA-Public Use
  Company Number: A0905852A

PATIENT

DRUGS (1)
  1. VENTOLIN [Suspect]
     Route: 055

REACTIONS (1)
  - DRUG ADMINISTRATION ERROR [None]
